FAERS Safety Report 4363148-6 (Version None)
Quarter: 2004Q2

REPORT INFORMATION
  Report Type: 
  Country: None (occurrence: None)
  Receive Date: 20040518
  Receipt Date: 20040507
  Transmission Date: 20050107
  Serious: Yes (Death)
  Sender: FDA-Public Use
  Company Number: JP-JNJFOC-20040200972

PATIENT
  Age: 70 Year
  Sex: Male

DRUGS (8)
  1. FENTANYL [Suspect]
     Indication: CANCER PAIN
     Dosage: 2.5 MG, 1 IN 3 DAY, TRANSDERMAL
     Route: 062
     Dates: start: 20040120, end: 20040127
  2. PROCHLORPERAZINE MALEATE (PROCHLORPERAZINE MALEATE) [Concomitant]
  3. MORPHINE [Concomitant]
  4. DICLOFENAC SODIUM [Concomitant]
  5. MAGNESIUM OXIDE (MAGNESIUM OXIDE) [Concomitant]
  6. ZOLPIDEM TARTRATE [Concomitant]
  7. SODIUM PICOSULFATE (SODIUM PICOSULFATE) [Concomitant]
  8. BUTYLSCOPOLAMINE BROMIDE (HYOSCINE) [Concomitant]

REACTIONS (2)
  - BLADDER CANCER [None]
  - CONDITION AGGRAVATED [None]
